FAERS Safety Report 8612967 (Version 3)
Quarter: 2012Q4

REPORT INFORMATION
  Report Type: 
  Country: US (occurrence: US)
  Receive Date: 20120613
  Receipt Date: 20121016
  Transmission Date: 20130627
  Serious: Yes (Other)
  Sender: FDA-Public Use
  Company Number: US-AMGEN-USASP2012035526

PATIENT
  Age: 34 Year
  Sex: Male

DRUGS (7)
  1. EPOGEN [Suspect]
     Indication: RENAL TRANSPLANT
     Dosage: UNK
  2. EPOGEN [Suspect]
  3. ARANESP [Suspect]
     Indication: RENAL TRANSPLANT
     Dosage: UNK
  4. PROGRAF [Concomitant]
     Dosage: UNK
  5. PREDNISOLONE [Concomitant]
     Dosage: UNK
  6. FLUDROCORTISONE ACETATE [Concomitant]
     Dosage: UNK
  7. AZATHIOPRINE [Concomitant]
     Dosage: UNK
     Dates: start: 2004

REACTIONS (4)
  - Anaemia [Unknown]
  - Iron overload [Unknown]
  - Aplasia pure red cell [Not Recovered/Not Resolved]
  - Anti-erythropoietin antibody positive [Recovered/Resolved]
